FAERS Safety Report 6071501-8 (Version None)
Quarter: 2009Q1

REPORT INFORMATION
  Report Type: 
  Country: None (occurrence: None)
  Receive Date: 20090209
  Receipt Date: 20090209
  Transmission Date: 20090719
  Serious: Yes (Other)
  Sender: FDA-Public Use
  Company Number: None

PATIENT
  Sex: Female
  Weight: 106.5953 kg

DRUGS (1)
  1. ATIVAN [Suspect]
     Indication: BIPOLAR DISORDER
     Dosage: ONE TAB AT BEDTIME P.O.
     Route: 048
     Dates: start: 20090126, end: 20090130

REACTIONS (4)
  - DRUG INEFFECTIVE [None]
  - HEADACHE [None]
  - INSOMNIA [None]
  - IRRITABILITY [None]
